FAERS Safety Report 23842817 (Version 5)
Quarter: 2025Q3

REPORT INFORMATION
  Report Type: Spontaneous
  Country: AR (occurrence: AR)
  Receive Date: 20240510
  Receipt Date: 20250730
  Transmission Date: 20251021
  Serious: Yes (Other)
  Sender: SANDOZ
  Company Number: AR-SANDOZ-SDZ2024AR021856

PATIENT
  Age: 11 Year
  Sex: Female
  Weight: 32 kg

DRUGS (5)
  1. MORPHINE [Suspect]
     Active Substance: MORPHINE
     Indication: Product used for unknown indication
     Route: 065
  2. OMNITROPE [Suspect]
     Active Substance: SOMATROPIN
     Indication: Growth retardation
     Route: 058
     Dates: start: 20170814
  3. OMNITROPE [Suspect]
     Active Substance: SOMATROPIN
     Indication: Growth hormone deficiency
     Dosage: 0.8 MG (7 DAYS A WEEK)
     Route: 058
  4. OMNITROPE [Suspect]
     Active Substance: SOMATROPIN
     Indication: Short stature
     Dosage: 0.8 MG (7 DAYS A WEEK)
     Route: 058
  5. RISPERIDONE [Concomitant]
     Active Substance: RISPERIDONE
     Indication: Product used for unknown indication
     Dosage: 2.5 MG, QD
     Route: 065
     Dates: end: 202411

REACTIONS (14)
  - Umbilical hernia [Unknown]
  - Talipes [Unknown]
  - Foot operation [Unknown]
  - Hypothyroidism [Unknown]
  - Dry skin [Unknown]
  - Sensitive skin [Unknown]
  - Skin exfoliation [Unknown]
  - Sleep deficit [Unknown]
  - Loss of personal independence in daily activities [Unknown]
  - Developmental delay [Unknown]
  - Ligament sprain [Unknown]
  - Drug hypersensitivity [Unknown]
  - Hypersensitivity [Unknown]
  - Hyperglycaemia [Not Recovered/Not Resolved]

NARRATIVE: CASE EVENT DATE: 20240410
